FAERS Safety Report 24548158 (Version 1)
Quarter: 2024Q4

REPORT INFORMATION
  Report Type: Spontaneous
  Country: GB (occurrence: GB)
  Receive Date: 20241025
  Receipt Date: 20241025
  Transmission Date: 20250114
  Serious: Yes (Other)
  Sender: CELLTRION
  Company Number: GB-CELLTRION INC.-2024GB021517

PATIENT

DRUGS (1)
  1. YUFLYMA [Suspect]
     Active Substance: ADALIMUMAB-AATY
     Indication: Ankylosing spondylitis
     Dosage: WEEKLY ONCE

REACTIONS (4)
  - Abdominal pain upper [Recovered/Resolved]
  - Poor quality sleep [Recovered/Resolved]
  - Melanocytic naevus [Recovered/Resolved]
  - Intentional product use issue [Unknown]
